FAERS Safety Report 7002191-5 (Version None)
Quarter: 2010Q3

REPORT INFORMATION
  Report Type: 
  Country: None (occurrence: None)
  Receive Date: 20100920
  Receipt Date: 20100908
  Transmission Date: 20110219
  Serious: Yes (Other)
  Sender: FDA-Public Use
  Company Number: US-PFIZER INC-2010113729

PATIENT
  Sex: Male
  Weight: 99.773 kg

DRUGS (1)
  1. VIAGRA [Suspect]
     Dosage: 200 MG, UNK
     Route: 048
     Dates: start: 20100908

REACTIONS (3)
  - MEDICATION ERROR [None]
  - PENILE PAIN [None]
  - PENILE SWELLING [None]
